FAERS Safety Report 7288575-9 (Version None)
Quarter: 2011Q1

REPORT INFORMATION
  Report Type: 
  Country: None (occurrence: None)
  Receive Date: 20110211
  Receipt Date: 20110202
  Transmission Date: 20110831
  Serious: Yes (Hospitalization)
  Sender: FDA-Public Use
  Company Number: SE-JNJFOC-20110200997

PATIENT
  Age: 37 Year
  Sex: Female

DRUGS (3)
  1. METHOTREXATE [Concomitant]
  2. REMICADE [Suspect]
     Indication: SPONDYLITIS
     Route: 042
  3. ROACTEMRA [Suspect]
     Indication: SPONDYLITIS
     Route: 042

REACTIONS (3)
  - PERITONITIS [None]
  - ABSCESS [None]
  - DRUG INEFFECTIVE [None]
